FAERS Safety Report 8963444 (Version 1)
Quarter: 2012Q4

REPORT INFORMATION
  Report Type: 
  Country: CN (occurrence: CN)
  Receive Date: 20121213
  Receipt Date: 20121213
  Transmission Date: 20130627
  Serious: Yes (Other)
  Sender: FDA-Public Use
  Company Number: PHHY2012CN108365

PATIENT
  Age: 72 Year
  Sex: Male
  Weight: 65 kg

DRUGS (2)
  1. VOLTAREN [Suspect]
     Indication: SOFT TISSUE INJURY
     Dosage: 2 mg/m2, TID
     Route: 061
     Dates: start: 20100720, end: 20100723
  2. CALAMINE LOTION [Concomitant]

REACTIONS (7)
  - Anaphylactoid reaction [Recovering/Resolving]
  - Swelling [Recovering/Resolving]
  - Blister [Recovering/Resolving]
  - Ulcer [Recovering/Resolving]
  - Erythema [Recovering/Resolving]
  - Pruritus [Recovering/Resolving]
  - Pigmentation disorder [Not Recovered/Not Resolved]
